FAERS Safety Report 8455891-4 (Version None)
Quarter: 2012Q2

REPORT INFORMATION
  Report Type: 
  Country: None (occurrence: None)
  Receive Date: 20120621
  Receipt Date: 20120614
  Transmission Date: 20120825
  Serious: Yes (Death, Hospitalization)
  Sender: FDA-Public Use
  Company Number: NL-ROCHE-1035426

PATIENT
  Sex: Male
  Weight: 61 kg

DRUGS (11)
  1. PREDNISONE [Suspect]
     Indication: DIFFUSE LARGE B-CELL LYMPHOMA
     Dosage: MOST RECENT DOSE PRIOR TO SAE 31/DEC/2011
     Route: 048
     Dates: start: 20111220
  2. CYCLOPHOSPHAMIDE [Suspect]
     Indication: DIFFUSE LARGE B-CELL LYMPHOMA
     Dosage: MOST RECENT DOSE PRIOR TO SAE 20/DEC/2011
     Route: 042
     Dates: start: 20111220
  3. FILGRASTIM [Suspect]
     Indication: DIFFUSE LARGE B-CELL LYMPHOMA
     Dosage: MOST RECENT DOSE PRIOR TO SAE 21/DEC/2011
     Dates: start: 20111221
  4. OXAZEPAM [Concomitant]
     Indication: SEDATION
     Dosage: MOST RECENT DOSE PRIOR TO SAE 27/JAN/2012
     Route: 048
     Dates: start: 20120126
  5. COLCHICINE [Concomitant]
     Indication: GOUT
     Route: 048
     Dates: start: 20110101, end: 20111230
  6. DOXORUBICIN HCL [Suspect]
     Indication: DIFFUSE LARGE B-CELL LYMPHOMA
     Dosage: MOST RECENT DOSE PRIOR TO SAE 20/DEC/2012
     Route: 042
     Dates: start: 20111220
  7. MABTHERA [Suspect]
     Indication: DIFFUSE LARGE B-CELL LYMPHOMA
     Dosage: MOST RECENT DOSE PRIOR TO SAE 27/DEC/2011
     Route: 042
     Dates: start: 20111220
  8. VINCRISTINE [Suspect]
     Indication: DIFFUSE LARGE B-CELL LYMPHOMA
     Dosage: MOST RECENT DOSE PRIOR TO SAE 20/DEC/2011
     Route: 042
     Dates: start: 20111220
  9. ACETAMINOPHEN [Concomitant]
     Indication: PAIN
     Dosage: 500
     Dates: start: 20111115, end: 20111230
  10. PANTOPRAZOLE [Concomitant]
     Route: 048
     Dates: start: 20110101, end: 20111230
  11. MOVICOLON [Concomitant]
     Indication: CONSTIPATION
     Dosage: CACHET, MOST RECENT DOSE PRIOR TO SAE 27/JAN/2012
     Route: 048
     Dates: start: 20110126

REACTIONS (2)
  - PULMONARY EMBOLISM [None]
  - PNEUMONIA [None]
